FAERS Safety Report 6747761-4 (Version None)
Quarter: 2010Q2

REPORT INFORMATION
  Report Type: 
  Country: None (occurrence: None)
  Receive Date: 20100528
  Receipt Date: 20100518
  Transmission Date: 20101027
  Serious: Yes (Other)
  Sender: FDA-Public Use
  Company Number: US-JNJFOC-20100507243

PATIENT
  Age: 81 Year
  Sex: Female
  Weight: 55.34 kg

DRUGS (4)
  1. TYLENOL (CAPLET) [Suspect]
     Route: 048
  2. TYLENOL (CAPLET) [Suspect]
     Indication: ARTHRALGIA
     Route: 048
  3. ZOLOFT [Suspect]
     Indication: DEPRESSION
  4. LORAZEPAM [Concomitant]
     Indication: ANXIETY

REACTIONS (2)
  - DRUG INEFFECTIVE [None]
  - HALLUCINATION [None]
